FAERS Safety Report 8064435-0 (Version None)
Quarter: 2012Q1

REPORT INFORMATION
  Report Type: 
  Country: None (occurrence: None)
  Receive Date: 20120123
  Receipt Date: 20120118
  Transmission Date: 20120608
  Serious: Yes (Hospitalization, Other)
  Sender: FDA-Public Use
  Company Number: GB-PFIZER INC-09-AUR-09236

PATIENT
  Age: 56 Year
  Sex: Male

DRUGS (23)
  1. VALPROIC ACID [Concomitant]
     Dosage: UNK
     Route: 048
  2. MONTELUKAST [Concomitant]
     Dosage: 10 MG
     Route: 046
  3. QUETIAPINE [Concomitant]
     Dosage: UNK
     Route: 048
  4. SULPIRIDE [Concomitant]
     Dosage: UNK
     Route: 048
  5. PARAFFIN, LIQUID [Concomitant]
     Dosage: UNK
     Route: 061
  6. PARACETAMOL [Concomitant]
     Dosage: UNK
     Route: 065
  7. UNIPHYLLIN UNICONTIN [Concomitant]
     Dosage: UNK
     Route: 065
  8. FUROSEMIDE [Suspect]
     Dosage: 40 MG, UNK
     Route: 048
     Dates: start: 20090113, end: 20090122
  9. ISOSORBIDE MONONITRATE [Concomitant]
     Dosage: UNKNOWN
     Route: 065
  10. LACTULOSE [Concomitant]
     Dosage: UNK
     Route: 048
  11. SENNA [Concomitant]
     Dosage: UNK
     Route: 065
  12. RAMIPRIL [Suspect]
     Dosage: 1.25 MG, 1X/DAY
     Route: 048
     Dates: start: 20090113, end: 20090122
  13. ACETYLSALICYLIC ACID [Concomitant]
     Dosage: UNK
     Route: 048
  14. LORAZEPAM [Concomitant]
     Dosage: UNK
     Route: 065
  15. PREDNISOLONE [Concomitant]
     Dosage: UNK
     Route: 048
  16. AMINOPHYLLINE [Concomitant]
     Dosage: UNKNOWN
     Route: 065
  17. QUETIAPINE [Concomitant]
     Dosage: UNK
     Route: 048
  18. AMOXICILLIN AND CLAVULANATE POTASSIUM [Concomitant]
     Dosage: UNK
     Route: 048
  19. PREDNISOLONE [Concomitant]
     Dosage: UNK
     Route: 048
  20. IPRATROPIUM [Concomitant]
     Dosage: UNK
     Route: 065
  21. SALBUTAMOL [Concomitant]
     Dosage: UNK
     Route: 045
  22. QUETIAPINE [Concomitant]
     Dosage: UNK
     Route: 048
  23. FLUTICASONE PROPIONATE/SALMETEROL [Concomitant]
     Dosage: UNK
     Route: 045

REACTIONS (8)
  - LOWER RESPIRATORY TRACT INFECTION [None]
  - COUGH [None]
  - CYANOSIS [None]
  - PULMONARY OEDEMA [None]
  - RENAL FAILURE ACUTE [None]
  - SEPSIS [None]
  - HYPOTENSION [None]
  - SPUTUM DISCOLOURED [None]
